FAERS Safety Report 9868472 (Version 4)
Quarter: 2014Q1

REPORT INFORMATION
  Report Type: Report from Study
  Country: CA (occurrence: CA)
  Receive Date: 20140204
  Receipt Date: 20140225
  Transmission Date: 20141002
  Serious: Yes (Death, Other)
  Sender: FDA-Public Use
  Company Number: CA-PFIZER INC-2014030411

PATIENT
  Age: 51 Year
  Sex: Female

DRUGS (3)
  1. MOTRIN [Suspect]
     Dosage: UNK
     Dates: start: 19991020
  2. ACETAMINOPHEN [Suspect]
     Dosage: HANDFULS
     Route: 065
     Dates: start: 19991020, end: 19991024
  3. TYLENOL NO 3 [Suspect]
     Dosage: UNK

REACTIONS (6)
  - Overdose [Fatal]
  - Cardiac arrest [Fatal]
  - Acute hepatic failure [Fatal]
  - Pneumonia aspiration [Fatal]
  - Brain oedema [Not Recovered/Not Resolved]
  - Encephalopathy [Not Recovered/Not Resolved]
